FAERS Safety Report 9305261 (Version 1)
Quarter: 2013Q2

REPORT INFORMATION
  Report Type: Spontaneous
  Country: US (occurrence: None)
  Receive Date: 20130522
  Receipt Date: 20130522
  Transmission Date: 20140414
  Serious: Yes (Hospitalization)
  Sender: FDA-Public Use
  Company Number: None

PATIENT
  Age: 68 Year
  Sex: Male
  Weight: 80 kg

DRUGS (1)
  1. PIPERACILLIN/TAZOBACTAM [Suspect]
     Indication: PNEUMONIA
     Route: 042
     Dates: start: 20121216, end: 20121216

REACTIONS (5)
  - Angioedema [None]
  - Mental status changes [None]
  - Urticaria [None]
  - Pruritus [None]
  - Swelling [None]
